FAERS Safety Report 18328886 (Version 1)
Quarter: 2020Q3

REPORT INFORMATION
  Report Type: Spontaneous
  Country: US (occurrence: US)
  Receive Date: 20200929
  Receipt Date: 20200929
  Transmission Date: 20201103
  Serious: No
  Sender: FDA-Public Use
  Company Number: None

PATIENT
  Sex: Female

DRUGS (1)
  1. HUMIRA [Suspect]
     Active Substance: ADALIMUMAB
     Indication: NEUROPATHY PERIPHERAL
     Route: 058
     Dates: start: 20190315

REACTIONS (2)
  - Fatigue [None]
  - Loss of personal independence in daily activities [None]
